FAERS Safety Report 8377357-2 (Version None)
Quarter: 2012Q2

REPORT INFORMATION
  Report Type: 
  Country: None (occurrence: None)
  Receive Date: 20120522
  Receipt Date: 20120507
  Transmission Date: 20120825
  Serious: Yes (Death, Other)
  Sender: FDA-Public Use
  Company Number: US-ROCHE-1051747

PATIENT
  Sex: Female

DRUGS (20)
  1. VANCOMYCIN [Concomitant]
  2. XANAX [Concomitant]
  3. HEPARIN [Concomitant]
  4. SIMVASTATIN [Concomitant]
  5. DULCOLAX TABLET [Concomitant]
  6. CARBOPLATIN [Concomitant]
  7. REGLAN [Concomitant]
  8. CEFEPIME [Concomitant]
  9. VITAMIN D [Concomitant]
  10. METOPROLOL [Concomitant]
  11. PROTONIX [Concomitant]
  12. RESTORIL [Concomitant]
  13. ASPIRIN [Concomitant]
  14. DUONEB [Concomitant]
  15. ZOFRAN [Concomitant]
  16. BONIVA [Suspect]
     Indication: PRODUCT USED FOR UNKNOWN INDICATION
  17. VITAMIN E [Concomitant]
  18. TYLENOL [Concomitant]
  19. PACLITAXEL [Concomitant]
  20. LOSARTAN POTASSIUM [Concomitant]

REACTIONS (2)
  - NEOPLASM MALIGNANT [None]
  - DEATH [None]
